FAERS Safety Report 6034977-8 (Version None)
Quarter: 2009Q1

REPORT INFORMATION
  Report Type: 
  Country: None (occurrence: None)
  Receive Date: 20090112
  Receipt Date: 20090105
  Transmission Date: 20090719
  Serious: Yes (Hospitalization)
  Sender: FDA-Public Use
  Company Number: AU-EISAI MEDICAL RESEARCH-E2020-03860-SPO-AU

PATIENT
  Sex: Female

DRUGS (9)
  1. ARICEPT [Suspect]
     Indication: PRESENILE DEMENTIA
     Route: 048
     Dates: end: 20051112
  2. DICLOFENAC SODIUM [Suspect]
     Indication: OSTEOARTHRITIS
     Dates: end: 20051103
  3. OXAZEPAM [Suspect]
     Indication: PSYCHOPATHIC PERSONALITY
     Route: 048
     Dates: start: 20050905, end: 20051104
  4. TEMAZEPAM [Suspect]
     Indication: DRUG USE FOR UNKNOWN INDICATION
     Route: 048
     Dates: end: 20051104
  5. RISPERIDONE [Suspect]
     Indication: INTERMITTENT EXPLOSIVE DISORDER
     Dates: start: 20050905, end: 20051103
  6. VALPROATE SODIUM [Suspect]
     Indication: INTERMITTENT EXPLOSIVE DISORDER
  7. CALCITRIOL [Concomitant]
  8. COLOXYL WITH SENNA [Concomitant]
  9. SIMVASTATIN [Concomitant]

REACTIONS (7)
  - COGWHEEL RIGIDITY [None]
  - DYSPHAGIA [None]
  - EXTRAPYRAMIDAL DISORDER [None]
  - HYPERTONIA [None]
  - MOBILITY DECREASED [None]
  - MUSCULOSKELETAL STIFFNESS [None]
  - TREMOR [None]
